FAERS Safety Report 6681049-5 (Version None)
Quarter: 2010Q2

REPORT INFORMATION
  Report Type: 
  Country: None (occurrence: None)
  Receive Date: 20100414
  Receipt Date: 20100413
  Transmission Date: 20101027
  Serious: Yes (Other)
  Sender: FDA-Public Use
  Company Number: NL-JNJFOC-20090807684

PATIENT
  Age: 69 Year
  Sex: Female

DRUGS (9)
  1. DAKTARIN [Suspect]
     Route: 061
  2. DAKTARIN [Suspect]
     Indication: MYCOSIS FUNGOIDES
     Route: 061
  3. ACENOCOUMAROL [Interacting]
     Indication: DRUG USE FOR UNKNOWN INDICATION
     Route: 065
  4. CHLORTHALIDONE [Concomitant]
     Route: 065
  5. FOSINOPRIL SODIUM [Concomitant]
     Route: 065
  6. METOPROLOL TARTRATE [Concomitant]
     Route: 065
  7. BISACODYL [Concomitant]
     Route: 065
  8. GLIMEPIRIDE [Concomitant]
     Route: 065
  9. METFORMIN HCL [Concomitant]
     Route: 065

REACTIONS (2)
  - DRUG INTERACTION [None]
  - INTERNATIONAL NORMALISED RATIO INCREASED [None]
